FAERS Safety Report 9880325 (Version 1)
Quarter: 2014Q1

REPORT INFORMATION
  Report Type: Spontaneous
  Country: US (occurrence: None)
  Receive Date: 20140206
  Receipt Date: 20140206
  Transmission Date: 20141002
  Serious: Yes (Death)
  Sender: FDA-Public Use
  Company Number: None

PATIENT
  Age: 89 Year
  Sex: Female
  Weight: 40.82 kg

DRUGS (1)
  1. FENTANYL PATCH 25 MCG/HR (NO PREF. NAME) [Suspect]
     Indication: PAIN MANAGEMENT
     Dosage: 1 PATCH  SUSTAINED RELEASE  APPLIED AS MEDICATED PATCH TO SKIN
     Route: 062
     Dates: start: 20140128, end: 20140129

REACTIONS (2)
  - Hypersomnia [None]
  - Drug prescribing error [None]
